FAERS Safety Report 7501261-2 (Version None)
Quarter: 2011Q2

REPORT INFORMATION
  Report Type: 
  Country: None (occurrence: None)
  Receive Date: 20110524
  Receipt Date: 20110516
  Transmission Date: 20111010
  Serious: Yes (Other)
  Sender: FDA-Public Use
  Company Number: US-ELI_LILLY_AND_COMPANY-US201103008874

PATIENT
  Sex: Female
  Weight: 115.65 kg

DRUGS (7)
  1. BYETTA [Suspect]
     Indication: TYPE 2 DIABETES MELLITUS
     Dosage: 5 UG, BID
     Route: 058
  2. BYETTA [Suspect]
     Dosage: 10 UG, QD
     Route: 058
  3. BYETTA [Suspect]
     Dosage: 10 UG, QD
     Route: 058
  4. ATENOLOL [Concomitant]
     Indication: HYPERTENSION
     Dosage: 50 MG, QD
  5. SYNTHROID [Concomitant]
     Indication: THYROID DISORDER
     Dosage: UNK, QD
     Route: 048
  6. BYETTA [Suspect]
     Dosage: 10 UG, BID
     Route: 058
  7. BYETTA [Suspect]
     Dosage: 10 UG, BID
     Route: 058

REACTIONS (13)
  - FALL [None]
  - INCORRECT DOSE ADMINISTERED [None]
  - BLOOD GLUCOSE DECREASED [None]
  - TREMOR [None]
  - WEIGHT DECREASED [None]
  - HEAD INJURY [None]
  - LIMB INJURY [None]
  - DIZZINESS [None]
  - WRONG TECHNIQUE IN DRUG USAGE PROCESS [None]
  - SYNCOPE [None]
  - HYPERHIDROSIS [None]
  - NAUSEA [None]
  - BLOOD GLUCOSE INCREASED [None]
